FAERS Safety Report 21962189 (Version 1)
Quarter: 2023Q1

REPORT INFORMATION
  Report Type: Spontaneous
  Country: CN (occurrence: CN)
  Receive Date: 20230207
  Receipt Date: 20230207
  Transmission Date: 20230418
  Serious: Yes (Hospitalization, Other)
  Sender: FDA-Public Use
  Company Number: CN-PFIZER INC-PV202300022185

PATIENT
  Age: 60 Year
  Sex: Female

DRUGS (6)
  1. VFEND [Suspect]
     Active Substance: VORICONAZOLE
     Indication: Anti-infective therapy
     Dosage: 0.2 G, 2X/DAY
     Route: 041
     Dates: start: 20230101, end: 20230113
  2. ZYVOX [Suspect]
     Active Substance: LINEZOLID
     Indication: Anti-infective therapy
     Dosage: 300 ML, 2X/DAY
     Route: 041
     Dates: start: 20230103, end: 20230107
  3. VANCOCIN [Suspect]
     Active Substance: VANCOMYCIN HYDROCHLORIDE
     Indication: Anti-infective therapy
     Dosage: 500 MG, 2X/DAY
     Route: 041
     Dates: start: 20230109, end: 20230113
  4. CILASTATIN SODIUM\IMIPENEM [Concomitant]
     Active Substance: CILASTATIN SODIUM\IMIPENEM
     Indication: Anti-infective therapy
     Dosage: UNK
     Dates: start: 20230103
  5. AMIKACIN [Concomitant]
     Active Substance: AMIKACIN
     Indication: Anti-infective therapy
     Dosage: UNK
  6. POLYMYXIN [Concomitant]
     Active Substance: POLYMYXIN
     Indication: Anti-infective therapy
     Dosage: UNK

REACTIONS (3)
  - Pseudomembranous colitis [Unknown]
  - Bacteraemia [Unknown]
  - Infection [Unknown]

NARRATIVE: CASE EVENT DATE: 20230101
